FAERS Safety Report 5418211-5 (Version None)
Quarter: 2007Q3

REPORT INFORMATION
  Report Type: 
  Country: None (occurrence: None)
  Receive Date: 20070817
  Receipt Date: 20070807
  Transmission Date: 20080115
  Serious: Yes (Other)
  Sender: FDA-Public Use
  Company Number: US-ROCHE-502778

PATIENT
  Age: 3 Year
  Sex: Male
  Weight: 13 kg

DRUGS (5)
  1. ROCALTROL [Suspect]
     Indication: HYPERPARATHYROIDISM
     Dosage: THE PATIENT RECEIVED INCREASING DOSES. FORMULATION REPORTED AS LIQUID.
     Route: 048
  2. ROCALTROL [Suspect]
     Dosage: CURRENT DRUG THERAPY ADDITIONAL INDICATION REPORTED AS RENAL FAILURE.
     Route: 048
  3. ROCALTROL [Suspect]
     Route: 048
  4. ROCALTROL [Suspect]
     Dosage: FREQUENCY REPORTED AS: QOD
     Route: 048
     Dates: start: 20070701
  5. FERROUS SULFATE TAB [Suspect]
     Route: 065

REACTIONS (3)
  - BLOOD PARATHYROID HORMONE INCREASED [None]
  - DRUG INEFFECTIVE [None]
  - THERAPEUTIC PRODUCT CONTAMINATION [None]
